FAERS Safety Report 9751240 (Version 1)
Quarter: 2013Q4

REPORT INFORMATION
  Report Type: Spontaneous
  Country: US (occurrence: US)
  Receive Date: 20131212
  Receipt Date: 20131212
  Transmission Date: 20140711
  Serious: No
  Sender: FDA-Public Use
  Company Number: US-BIOGENIDEC-2013BI100704

PATIENT
  Age: 49 Year
  Sex: Female

DRUGS (10)
  1. TECFIDERA [Suspect]
     Indication: MULTIPLE SCLEROSIS
     Route: 048
     Dates: start: 20130910
  2. RELPAX [Concomitant]
  3. CELEXA [Concomitant]
  4. BACLOFEN [Concomitant]
  5. OMEPRAZOLE [Concomitant]
  6. LYRICA [Concomitant]
  7. KLONOPIN [Concomitant]
  8. IBUPROFEN [Concomitant]
  9. TRAMADOL [Concomitant]
  10. VISTARIL [Concomitant]

REACTIONS (1)
  - Fatigue [Not Recovered/Not Resolved]
